FAERS Safety Report 5629062-0 (Version None)
Quarter: 2008Q1

REPORT INFORMATION
  Report Type: 
  Country: None (occurrence: None)
  Receive Date: 20080216
  Receipt Date: 20071218
  Transmission Date: 20080703
  Serious: Yes (Hospitalization, Other)
  Sender: FDA-Public Use
  Company Number: US-PURDUE-USA_2007_0031648

PATIENT
  Sex: Male

DRUGS (1)
  1. OXYCONTIN [Suspect]
     Indication: BACK PAIN
     Dosage: 10 MG, UNK

REACTIONS (6)
  - ANOREXIA [None]
  - COMA [None]
  - DRUG DEPENDENCE [None]
  - EUPHORIC MOOD [None]
  - HOSPITALISATION [None]
  - MEMORY IMPAIRMENT [None]
